FAERS Safety Report 15936553 (Version 1)
Quarter: 2019Q1

REPORT INFORMATION
  Report Type: Spontaneous
  Country: DE (occurrence: DE)
  Receive Date: 20190208
  Receipt Date: 20190208
  Transmission Date: 20190417
  Serious: Yes (Other)
  Sender: FDA-Public Use
  Company Number: DE-AUROBINDO-AUR-APL-2019-006240

PATIENT

DRUGS (1)
  1. PANTOPRAZOLE GASTRO-RESISTANT TABLET [Suspect]
     Active Substance: PANTOPRAZOLE SODIUM
     Indication: GASTROOESOPHAGEAL REFLUX DISEASE
     Dosage: 20 MILLIGRAM, AS NECESSARY
     Route: 048
     Dates: start: 201809, end: 201812

REACTIONS (1)
  - Angina pectoris [Recovered/Resolved]
